FAERS Safety Report 7581283-6 (Version None)
Quarter: 2011Q2

REPORT INFORMATION
  Report Type: 
  Country: None (occurrence: None)
  Receive Date: 20110629
  Receipt Date: 20110606
  Transmission Date: 20111010
  Serious: Yes (Hospitalization, Other)
  Sender: FDA-Public Use
  Company Number: US-BAYER-201021147NA

PATIENT
  Age: 34 Year
  Sex: Female
  Weight: 54.422 kg

DRUGS (32)
  1. DROSPIRENONE AND ETHINYL ESTRADIOL [Suspect]
     Indication: PRODUCT USED FOR UNKNOWN INDICATION
     Dosage: AS USED DOSE: UNK
     Route: 065
     Dates: start: 20071001
  2. PROMETHAZINE [Concomitant]
  3. ORAL CONTRACEPTIVE NOS [Concomitant]
     Dosage: UNK UNK, QD
     Route: 048
  4. ATIVAN [Concomitant]
  5. METHYLPREDNISOLONE [Concomitant]
  6. ZYRTEC [Concomitant]
     Dosage: 10 MG, QD
     Route: 048
  7. IBUPROFEN [Concomitant]
  8. ACETAMINOPHEN [Concomitant]
  9. TORADOL [Concomitant]
     Dosage: UNK UNK, PRN
  10. DEMEROL [Concomitant]
  11. INDAPAMIDE [Concomitant]
  12. YAZ [Suspect]
     Dosage: AS USED DOSE: UNK
     Route: 048
     Dates: start: 20071001
  13. RESTORIL [Concomitant]
  14. FLUCONAZOLE [Concomitant]
  15. CITALOPRAM HYDROBROMIDE [Concomitant]
  16. PROPOXYPHENE NAPSYLATE W/ ACETAMINOPHEN [Concomitant]
  17. AMLODIPINE [Concomitant]
  18. CELEXA [Concomitant]
     Dosage: 20 MG, HS
     Route: 048
  19. YASMIN [Suspect]
     Dosage: AS USED DOSE: UNK
     Route: 048
     Dates: start: 20071001
  20. CYMBALTA [Concomitant]
     Indication: DEPRESSION
     Dosage: UNK
     Dates: start: 20080101
  21. CIPROFLOXACIN [Concomitant]
     Indication: DYSURIA
  22. SPIRONOLACTONE [Concomitant]
     Dosage: UNK
     Dates: start: 20090601, end: 20090801
  23. CLONIDINE [Concomitant]
  24. POTASSIUM CHLORIDE [Concomitant]
  25. MACROBID [Concomitant]
  26. OMEPRAZOLE [Concomitant]
  27. TOPAMAX [Concomitant]
     Indication: MIGRAINE
     Dosage: 50 MG, HS
     Route: 048
     Dates: start: 19980101
  28. MUCINEX [Concomitant]
  29. RELPAX [Concomitant]
     Dosage: 10 MG, PRN
     Route: 048
  30. ASPIRIN [Concomitant]
  31. ACETAMINOPHEN [Concomitant]
  32. MAXALT [Concomitant]

REACTIONS (5)
  - CHOLECYSTITIS CHRONIC [None]
  - GALLBLADDER DISORDER [None]
  - CEREBROVASCULAR ACCIDENT [None]
  - LACUNAR INFARCTION [None]
  - BILIARY COLIC [None]
